FAERS Safety Report 6241114-3 (Version None)
Quarter: 2009Q2

REPORT INFORMATION
  Report Type: 
  Country: None (occurrence: None)
  Receive Date: 20090619
  Receipt Date: 20090619
  Transmission Date: 20091009
  Serious: Yes (Other)
  Sender: FDA-Public Use
  Company Number: None

PATIENT
  Age: 61 Year
  Sex: Male
  Weight: 99.7913 kg

DRUGS (2)
  1. CARVEDILOL [Suspect]
     Dosage: PO
     Route: 048
  2. AMILORIDE HYDROCHLORIDE [Concomitant]

REACTIONS (4)
  - AGGRESSION [None]
  - DEPRESSION [None]
  - FEELING JITTERY [None]
  - SLEEP DISORDER [None]
